FAERS Safety Report 4563235-3 (Version None)
Quarter: 2005Q1

REPORT INFORMATION
  Report Type: 
  Country: None (occurrence: None)
  Receive Date: 20050125
  Receipt Date: 20050111
  Transmission Date: 20050727
  Serious: Yes (Other)
  Sender: FDA-Public Use
  Company Number: DE-2005-000813

PATIENT

DRUGS (3)
  1. ULTRAVIST 370 [Suspect]
     Indication: ARTERIOGRAM CORONARY
  2. PERCHLORATE [Concomitant]
  3. SODIUM PERTECHNETATE (99M TC) [Concomitant]

REACTIONS (1)
  - HYPERTHYROIDISM [None]
